FAERS Safety Report 8255352-1 (Version None)
Quarter: 2012Q2

REPORT INFORMATION
  Report Type: 
  Country: None (occurrence: None)
  Receive Date: 20120403
  Receipt Date: 20120326
  Transmission Date: 20120825
  Serious: Yes (Other)
  Sender: FDA-Public Use
  Company Number: CH-UCBSA-054331

PATIENT
  Age: 63 Year
  Sex: Male

DRUGS (6)
  1. KEPPRA [Suspect]
     Route: 048
  2. CILENGITIDE [Concomitant]
  3. KEPPRA [Suspect]
     Indication: EPILEPSY
     Dates: start: 20100101
  4. ZYPREXA [Concomitant]
     Indication: NEUROLOGICAL SYMPTOM
  5. ZYPREXA [Concomitant]
     Route: 048
  6. TEMODAL [Concomitant]
     Indication: BRAIN NEOPLASM
     Dosage: UNKNOWN TWICE A WEEK

REACTIONS (6)
  - GRAND MAL CONVULSION [None]
  - CEREBRAL HAEMORRHAGE [None]
  - SKULL FRACTURE [None]
  - SOMNOLENCE [None]
  - BRAIN OEDEMA [None]
  - FATIGUE [None]
